FAERS Safety Report 8985286 (Version 3)
Quarter: 2013Q1

REPORT INFORMATION
  Report Type: Report from Study
  Country: FR (occurrence: FR)
  Receive Date: 20121226
  Receipt Date: 20130110
  Transmission Date: 20140127
  Serious: Yes (Death, Hospitalization, Other)
  Sender: FDA-Public Use
  Company Number: FR-PFIZER INC-2012323236

PATIENT
  Sex: Female

DRUGS (1)
  1. CRIZOTINIB [Suspect]
     Dosage: UNK
     Dates: start: 20120806, end: 20120828

REACTIONS (4)
  - Disease progression [Fatal]
  - Neoplasm malignant [Fatal]
  - General physical health deterioration [Unknown]
  - Aphagia [Unknown]
